FAERS Safety Report 10149393 (Version 1)
Quarter: 2014Q2

REPORT INFORMATION
  Report Type: Report from Study
  Country: US (occurrence: None)
  Receive Date: 20140430
  Receipt Date: 20140430
  Transmission Date: 20141212
  Serious: Yes (Hospitalization)
  Sender: FDA-Public Use
  Company Number: US-JNJFOC-20140415003

PATIENT
  Age: 80 Year
  Sex: Male
  Weight: 78 kg

DRUGS (1)
  1. DECITABINE [Suspect]
     Indication: ACUTE MYELOID LEUKAEMIA
     Route: 042
     Dates: start: 20120609

REACTIONS (6)
  - Syncope [None]
  - Febrile neutropenia [None]
  - Deep vein thrombosis [None]
  - Embolism [None]
  - Fall [None]
  - Enterocolitis infectious [None]
